FAERS Safety Report 9683713 (Version 1)
Quarter: 2013Q4

REPORT INFORMATION
  Report Type: Report from Study
  Country: DE (occurrence: DE)
  Receive Date: 20131112
  Receipt Date: 20131112
  Transmission Date: 20140711
  Serious: Yes (Hospitalization)
  Sender: FDA-Public Use
  Company Number: DE-PFIZER INC-2013320288

PATIENT
  Age: 72 Year
  Sex: Female
  Weight: 70 kg

DRUGS (4)
  1. EXEMESTANE [Suspect]
     Indication: BREAST CANCER
     Dosage: 25 MG DAILY
     Dates: start: 20130529
  2. AFINITOR [Suspect]
     Indication: BREAST CANCER
     Dosage: UNK
     Dates: start: 20130529, end: 20130613
  3. AFINITOR [Suspect]
     Dosage: 5.0 MG, DAILY
     Dates: start: 20130619, end: 20130930
  4. AFINITOR [Suspect]
     Dosage: UNK

REACTIONS (1)
  - Pneumonitis [Recovered/Resolved]
